FAERS Safety Report 14317783 (Version 1)
Quarter: 2017Q4

REPORT INFORMATION
  Report Type: Report from Study
  Country: US (occurrence: US)
  Receive Date: 20171222
  Receipt Date: 20171222
  Transmission Date: 20180321
  Serious: Yes (Other)
  Sender: FDA-Public Use
  Company Number: US-PFIZER INC-2017542974

PATIENT
  Age: 32 Week

DRUGS (9)
  1. CALCIUM [Concomitant]
     Active Substance: CALCIUM
     Dosage: 140 MG/KG, DAILY, (ON ENTRY INTO STUDY)
  2. MAGNESIUM [Concomitant]
     Active Substance: MAGNESIUM
     Dosage: UNK
  3. FUROSEMIDE. [Suspect]
     Active Substance: FUROSEMIDE
     Indication: COR PULMONALE
     Dosage: 2.0 MG/KG, DAILY (ENTRY INTO STUDY)
  4. FUROSEMIDE. [Suspect]
     Active Substance: FUROSEMIDE
     Dosage: 1.0 MG/KG, DAILY (2 WEEKS LATER)
  5. VITAMIN D [Concomitant]
     Active Substance: CHOLECALCIFEROL
     Dosage: 753 IU, DAILY (ON ENTRY INTO STUDY)
  6. CALCIUM [Concomitant]
     Active Substance: CALCIUM
     Dosage: 91 MG/KG, DAILY (2 WEEKS LATER)
  7. PHOSPHORUS [Concomitant]
     Active Substance: PHOSPHORUS
     Dosage: 70 MG/KG, DAILY (ON ENTRY INTO STUDY)
  8. PHOSPHORUS [Concomitant]
     Active Substance: PHOSPHORUS
     Dosage: 67 MG/KG, DAILY (2 WEEKS LATER)
  9. VITAMIN D [Concomitant]
     Active Substance: CHOLECALCIFEROL
     Dosage: 544 IU, DAILY (2 WEEKS LATER)

REACTIONS (3)
  - Hyperparathyroidism [Unknown]
  - Osteopenia [Unknown]
  - Hypercalciuria [Unknown]
